FAERS Safety Report 23285998 (Version 5)
Quarter: 2024Q2

REPORT INFORMATION
  Report Type: Spontaneous
  Country: PL (occurrence: PL)
  Receive Date: 20231212
  Receipt Date: 20240603
  Transmission Date: 20240716
  Serious: No
  Sender: FDA-Public Use
  Company Number: PL-JNJFOC-20231154052

PATIENT
  Sex: Male

DRUGS (4)
  1. SIMPONI [Suspect]
     Active Substance: GOLIMUMAB
     Indication: Product used for unknown indication
     Dosage: 50.00 MG / 0.50 ML
     Route: 058
  2. SIMPONI [Suspect]
     Active Substance: GOLIMUMAB
  3. SIMPONI [Suspect]
     Active Substance: GOLIMUMAB
     Indication: Product used for unknown indication
     Dosage: STRENGTH:50.00 MG / 0.50 ML
     Route: 058
  4. SIMPONI [Suspect]
     Active Substance: GOLIMUMAB

REACTIONS (2)
  - Device deployment issue [Unknown]
  - Accidental exposure to product [Unknown]
